FAERS Safety Report 7823018-5 (Version None)
Quarter: 2011Q4

REPORT INFORMATION
  Report Type: 
  Country: None (occurrence: None)
  Receive Date: 20111018
  Receipt Date: 20110128
  Transmission Date: 20120403
  Serious: No
  Sender: FDA-Public Use
  Company Number: US-ASTRAZENECA-2011SE05202

PATIENT
  Age: 71 Year
  Sex: Female

DRUGS (3)
  1. ALEGRA [Concomitant]
  2. ALBUTAROL [Concomitant]
  3. SYMBICORT [Suspect]
     Indication: ASTHMA
     Route: 055
     Dates: start: 20110127, end: 20110128

REACTIONS (1)
  - HYPERSOMNIA [None]
